FAERS Safety Report 23230498 (Version 1)
Quarter: 2023Q4

REPORT INFORMATION
  Report Type: Spontaneous
  Country: US (occurrence: US)
  Receive Date: 20231127
  Receipt Date: 20231127
  Transmission Date: 20240109
  Serious: No
  Sender: FDA-Public Use
  Company Number: US-SANDOZ-SDZ2023US059819

PATIENT
  Sex: Female

DRUGS (1)
  1. TRIAMCINOLONE [Suspect]
     Active Substance: TRIAMCINOLONE
     Indication: Product used for unknown indication
     Dosage: UNK
     Route: 065

REACTIONS (8)
  - Scar [Unknown]
  - Acne [Unknown]
  - Macule [Unknown]
  - Papule [Unknown]
  - Skin abrasion [Unknown]
  - Scratch [Unknown]
  - Pain [Unknown]
  - Pruritus [Unknown]
